FAERS Safety Report 8213701-4 (Version None)
Quarter: 2012Q1

REPORT INFORMATION
  Report Type: 
  Country: None (occurrence: None)
  Receive Date: 20120315
  Receipt Date: 20120314
  Transmission Date: 20120608
  Serious: Yes (Hospitalization)
  Sender: FDA-Public Use
  Company Number: US-BAXTER-2012BH006719

PATIENT
  Age: 3 Month
  Sex: Female
  Weight: 8 kg

DRUGS (8)
  1. SEVELAMER [Concomitant]
     Indication: PRODUCT USED FOR UNKNOWN INDICATION
     Route: 048
  2. CALCITRIOL [Concomitant]
     Indication: PRODUCT USED FOR UNKNOWN INDICATION
     Route: 048
  3. EPOETIN ALFA [Concomitant]
     Indication: PRODUCT USED FOR UNKNOWN INDICATION
     Route: 065
  4. NUTROPIN [Concomitant]
     Indication: PRODUCT USED FOR UNKNOWN INDICATION
     Route: 065
  5. AMOXICILLIN [Concomitant]
     Indication: PRODUCT USED FOR UNKNOWN INDICATION
     Route: 048
  6. DIANEAL [Suspect]
     Indication: PERITONEAL DIALYSIS
     Route: 033
     Dates: start: 20110801
  7. FERROUS SULFATE TAB [Concomitant]
     Indication: PRODUCT USED FOR UNKNOWN INDICATION
     Route: 048
  8. GENTAMICIN [Concomitant]
     Indication: PRODUCT USED FOR UNKNOWN INDICATION
     Route: 061

REACTIONS (1)
  - ULTRAFILTRATION FAILURE [None]
